FAERS Safety Report 11006884 (Version 1)
Quarter: 2015Q2

REPORT INFORMATION
  Report Type: Spontaneous
  Country: US (occurrence: US)
  Receive Date: 20150409
  Receipt Date: 20150409
  Transmission Date: 20150821
  Serious: No
  Sender: FDA-Public Use
  Company Number: US-ALLERGAN-1426471US

PATIENT
  Age: 32 Year
  Sex: Female

DRUGS (1)
  1. LATISSE [Suspect]
     Active Substance: BIMATOPROST
     Indication: GROWTH OF EYELASHES
     Dosage: 2 GTT, QHS
     Route: 061
     Dates: start: 20141215

REACTIONS (4)
  - Eyelid oedema [Unknown]
  - Lid sulcus deepened [Not Recovered/Not Resolved]
  - Eye swelling [Not Recovered/Not Resolved]
  - Inappropriate schedule of drug administration [Unknown]
